FAERS Safety Report 18657126 (Version 1)
Quarter: 2020Q4

REPORT INFORMATION
  Report Type: Spontaneous
  Country: US (occurrence: US)
  Receive Date: 20201223
  Receipt Date: 20201223
  Transmission Date: 20210114
  Serious: No
  Sender: FDA-Public Use
  Company Number: US-JNJFOC-20201235169

PATIENT
  Sex: Male

DRUGS (1)
  1. ERLEADA [Suspect]
     Active Substance: APALUTAMIDE
     Indication: PRODUCT USED FOR UNKNOWN INDICATION
     Dosage: 60 MG 4 TABLETS DAILY
     Route: 048
     Dates: start: 20190930

REACTIONS (5)
  - Paraesthesia [Recovering/Resolving]
  - Dyspnoea [Unknown]
  - Vision blurred [Recovering/Resolving]
  - Headache [Recovering/Resolving]
  - Secretion discharge [Recovering/Resolving]
